FAERS Safety Report 19283382 (Version 4)
Quarter: 2021Q3

REPORT INFORMATION
  Report Type: Report from Study
  Country: GB (occurrence: GB)
  Receive Date: 20210521
  Receipt Date: 20210723
  Transmission Date: 20211014
  Serious: Yes (Death, Hospitalization)
  Sender: FDA-Public Use
  Company Number: GB-JNJFOC-20210527894

PATIENT
  Age: 74 Year
  Sex: Male
  Weight: 91 kg

DRUGS (3)
  1. DARATUMUMAB [Suspect]
     Active Substance: DARATUMUMAB
     Indication: PLASMA CELL MYELOMA
     Route: 058
     Dates: start: 20180807, end: 20210423
  2. DEXAMETHASONE. [Suspect]
     Active Substance: DEXAMETHASONE
     Indication: PLASMA CELL MYELOMA
     Dosage: DAYS 1,8,15 AND 22
     Route: 065
     Dates: start: 20180807, end: 20210514
  3. LENALIDOMIDE [Suspect]
     Active Substance: LENALIDOMIDE
     Indication: PLASMA CELL MYELOMA
     Dosage: DAILY FOR 21 DAYS
     Route: 065
     Dates: start: 20180807, end: 20210511

REACTIONS (2)
  - Infection [Fatal]
  - Confusional state [Fatal]

NARRATIVE: CASE EVENT DATE: 20210510
